FAERS Safety Report 10167289 (Version 1)
Quarter: 2014Q2

REPORT INFORMATION
  Report Type: Spontaneous
  Country: US (occurrence: US)
  Receive Date: 20140512
  Receipt Date: 20140512
  Transmission Date: 20141212
  Serious: No
  Sender: FDA-Public Use
  Company Number: US-PFIZER INC-2014128561

PATIENT
  Age: 43 Year
  Sex: Female
  Weight: 97.96 kg

DRUGS (11)
  1. XELJANZ [Suspect]
     Indication: RHEUMATOID ARTHRITIS
     Dosage: 5 MG, 2X/DAY
     Route: 048
  2. SINGULAIR [Concomitant]
     Dosage: 10 MG
  3. CELEBREX [Concomitant]
     Dosage: 50 MG
  4. ULTRACET [Concomitant]
     Dosage: 37.5-325
  5. METHOTREXATE [Concomitant]
     Dosage: 2.5 MG
  6. NEURONTIN [Concomitant]
     Dosage: 100 MG
  7. PHENTERMINE [Concomitant]
     Dosage: 30 MG
  8. VITAMIN D [Concomitant]
     Dosage: 1000 IU
  9. FOLIC ACID [Concomitant]
     Dosage: 1000 IU
  10. COLACE [Concomitant]
     Dosage: 100 MG, UNK
  11. DEXILANT [Concomitant]
     Dosage: 60 MG

REACTIONS (1)
  - Drug ineffective [Unknown]
